FAERS Safety Report 7366462-5 (Version None)
Quarter: 2011Q1

REPORT INFORMATION
  Report Type: 
  Country: None (occurrence: None)
  Receive Date: 20110317
  Receipt Date: 20110317
  Transmission Date: 20110831
  Serious: Yes (Hospitalization, Disabling)
  Sender: FDA-Public Use
  Company Number: None

PATIENT
  Age: 57 Year
  Sex: Female
  Weight: 65.7716 kg

DRUGS (1)
  1. JANUMET [Suspect]
     Indication: TYPE 2 DIABETES MELLITUS
     Dosage: 50/MG/1000 MG 2 TIMES A DAY
     Dates: start: 20100301, end: 20110316

REACTIONS (3)
  - CHEST PAIN [None]
  - BLOOD GLUCOSE INCREASED [None]
  - PALPITATIONS [None]
